FAERS Safety Report 5753964-8 (Version None)
Quarter: 2008Q2

REPORT INFORMATION
  Report Type: 
  Country: None (occurrence: None)
  Receive Date: 20080530
  Receipt Date: 20080519
  Transmission Date: 20081010
  Serious: Yes (Hospitalization, Other)
  Sender: FDA-Public Use
  Company Number: FR-GENENTECH-260190

PATIENT
  Age: 58 Year
  Sex: Male

DRUGS (5)
  1. MABTHERA [Suspect]
     Indication: PARANEOPLASTIC CEREBELLAR DEGENERATION
     Dosage: 375 MG/M2, UNK
     Route: 042
     Dates: start: 20080103
  2. OGAST [Suspect]
     Indication: DRUG USE FOR UNKNOWN INDICATION
     Route: 048
  3. SOLUPRED [Suspect]
     Indication: DRUG USE FOR UNKNOWN INDICATION
     Dosage: 20 MG, QD
     Route: 048
  4. CONCOMITANT DRUG [Concomitant]
     Indication: DRUG USE FOR UNKNOWN INDICATION
  5. ETOPOSIDE [Concomitant]
     Indication: BRONCHIAL CARCINOMA
     Dates: start: 20070201

REACTIONS (1)
  - INTERSTITIAL LUNG DISEASE [None]
